FAERS Safety Report 6876345-2 (Version None)
Quarter: 2010Q3

REPORT INFORMATION
  Report Type: 
  Country: None (occurrence: None)
  Receive Date: 20100727
  Receipt Date: 20070702
  Transmission Date: 20110219
  Serious: Yes (Hospitalization, Other)
  Sender: FDA-Public Use
  Company Number: US-PFIZER INC-2006112591

PATIENT

DRUGS (2)
  1. CELEBREX [Suspect]
     Indication: PAIN
     Route: 065
     Dates: start: 19990801, end: 20020731
  2. VIOXX [Suspect]
     Dates: start: 20000623, end: 20041001

REACTIONS (2)
  - MYOCARDIAL INFARCTION [None]
  - PULMONARY EMBOLISM [None]
